FAERS Safety Report 11320851 (Version 2)
Quarter: 2015Q3

REPORT INFORMATION
  Report Type: Spontaneous
  Country: US (occurrence: US)
  Receive Date: 20150729
  Receipt Date: 20150917
  Transmission Date: 20151125
  Serious: Yes (Other)
  Sender: FDA-Public Use
  Company Number: US-CELGENEUS-USA-2015073021

PATIENT
  Age: 82 Year
  Sex: Male

DRUGS (2)
  1. REVLIMID [Suspect]
     Active Substance: LENALIDOMIDE
     Route: 048
     Dates: start: 201509
  2. REVLIMID [Suspect]
     Active Substance: LENALIDOMIDE
     Indication: PLASMA CELL MYELOMA
     Route: 048
     Dates: start: 201505

REACTIONS (4)
  - Dizziness [Not Recovered/Not Resolved]
  - Loss of consciousness [Not Recovered/Not Resolved]
  - Depressed mood [Not Recovered/Not Resolved]
  - Fatigue [Not Recovered/Not Resolved]

NARRATIVE: CASE EVENT DATE: 20150702
